FAERS Safety Report 14782681 (Version 1)
Quarter: 2018Q2

REPORT INFORMATION
  Report Type: Spontaneous
  Country: CA (occurrence: CA)
  Receive Date: 20180420
  Receipt Date: 20180420
  Transmission Date: 20180711
  Serious: Yes (Other)
  Sender: FDA-Public Use
  Company Number: CA-TEVA-2018-CA-881493

PATIENT
  Age: 67 Year
  Sex: Female

DRUGS (3)
  1. PREDNISONE. [Suspect]
     Active Substance: PREDNISONE
     Indication: COLITIS ULCERATIVE
  2. PREDNISONE. [Suspect]
     Active Substance: PREDNISONE
     Indication: ACUTE HAEMORRHAGIC ULCERATIVE COLITIS
     Dosage: TRIED MANY TIMES; TRYING TO TAPER OFF PREDNISONE
     Route: 065
     Dates: end: 201710
  3. ENTYVIO [Concomitant]
     Active Substance: VEDOLIZUMAB
     Indication: COLITIS ULCERATIVE
     Dates: start: 201706, end: 20180322

REACTIONS (1)
  - Colitis ulcerative [Unknown]
